FAERS Safety Report 23586689 (Version 1)
Quarter: 2024Q1

REPORT INFORMATION
  Report Type: Spontaneous
  Country: JP (occurrence: None)
  Receive Date: 20240301
  Receipt Date: 20240301
  Transmission Date: 20240410
  Serious: Yes (Hospitalization)
  Sender: FDA-Public Use
  Company Number: 2024A045935

PATIENT
  Age: 65 Year
  Sex: Female

DRUGS (8)
  1. BENRALIZUMAB [Suspect]
     Active Substance: BENRALIZUMAB
     Indication: Asthma
     Route: 058
  2. BENRALIZUMAB [Suspect]
     Active Substance: BENRALIZUMAB
     Indication: Sinusitis
     Route: 058
  3. BENRALIZUMAB [Suspect]
     Active Substance: BENRALIZUMAB
     Indication: Eosinophilic pneumonia
     Route: 058
  4. PREDNISOLONE [Concomitant]
     Active Substance: PREDNISOLONE
     Indication: Eosinophilic pneumonia
     Dosage: 30.0MG UNKNOWN
  5. PRANLUKAST HEMIHYDRATE [Concomitant]
     Active Substance: PRANLUKAST HEMIHYDRATE
  6. EPINASTINE HYDROCHLORIDE [Concomitant]
     Active Substance: EPINASTINE HYDROCHLORIDE
  7. BUDESONIDE [Concomitant]
     Active Substance: BUDESONIDE
  8. FLUTICASONE FUROATE [Concomitant]
     Active Substance: FLUTICASONE FUROATE

REACTIONS (1)
  - Eosinophilic granulomatosis with polyangiitis [Recovering/Resolving]
